FAERS Safety Report 6382147-6 (Version None)
Quarter: 2009Q3

REPORT INFORMATION
  Report Type: 
  Country: None (occurrence: None)
  Receive Date: 20090930
  Receipt Date: 20090928
  Transmission Date: 20100115
  Serious: Yes (Other)
  Sender: FDA-Public Use
  Company Number: US-BRISTOL-MYERS SQUIBB COMPANY-14779599

PATIENT
  Age: 67 Year
  Sex: Male

DRUGS (2)
  1. GLUCOPHAGE [Suspect]
     Route: 048
  2. LASIX [Concomitant]

REACTIONS (1)
  - DIABETIC NEUROPATHY [None]
